FAERS Safety Report 8834353 (Version 1)
Quarter: 2012Q4

REPORT INFORMATION
  Report Type: 
  Country: DE (occurrence: DE)
  Receive Date: 20121010
  Receipt Date: 20121010
  Transmission Date: 20130627
  Serious: Yes (Hospitalization, Other)
  Sender: FDA-Public Use
  Company Number: DE-PFIZER INC-2012248847

PATIENT
  Age: 31 Year
  Sex: Female

DRUGS (4)
  1. CELONTIN [Suspect]
     Indication: CONVULSION
     Dosage: 1200 mg, UNK
  2. LAMOTRIGINE [Interacting]
     Indication: CONVULSION
     Dosage: 400 mg, UNK
  3. PRIMIDONE [Suspect]
     Indication: CONVULSION
     Dosage: 62.5 mg, UNK
  4. VALPROIC ACID [Suspect]
     Indication: CONVULSION
     Dosage: 2400 mg, UNK

REACTIONS (12)
  - Toxicity to various agents [Recovered/Resolved]
  - Somnolence [Recovered/Resolved]
  - Drug interaction [Recovered/Resolved]
  - Nausea [None]
  - Ataxia [None]
  - General physical health deterioration [None]
  - Fall [None]
  - Condition aggravated [None]
  - Vomiting [None]
  - Grand mal convulsion [None]
  - Decreased appetite [None]
  - Weight decreased [None]
